FAERS Safety Report 5134747-9 (Version None)
Quarter: 2006Q4

REPORT INFORMATION
  Report Type: 
  Country: None (occurrence: None)
  Receive Date: 20061019
  Receipt Date: 20060927
  Transmission Date: 20070319
  Serious: Yes (Hospitalization, Other)
  Sender: FDA-Public Use
  Company Number: 2006-07-2121

PATIENT
  Age: 51 Year
  Sex: Female

DRUGS (13)
  1. PEG-INTRON [Suspect]
     Indication: HEPATITIS C
     Dates: start: 20060629
  2. REBETOL [Suspect]
     Indication: HEPATITIS C
     Dosage: PO
     Route: 048
     Dates: start: 20060629
  3. AMBIEN [Concomitant]
  4. CALCIUM WITH VITAMIN D (CON.) [Concomitant]
  5. EPZICOM (CON.) [Concomitant]
  6. NIFEDIPINE LA (CON.) [Concomitant]
  7. HYDROCHLOROTHIAZIDE (CON.) [Concomitant]
  8. MINOCYCLINE HYDROCHLORIDE (CON.) [Concomitant]
  9. NASONEX (MOMETASONE FUROATE (NASAL)) (CON.) [Concomitant]
  10. PREMARIN (CON.) [Concomitant]
  11. VIRACEPT (CON.) [Concomitant]
  12. VITAMIN B COMPLEX (CON.) [Concomitant]
  13. ZYRTEC-D EXTENDED RELEASE (CERTIRIZINE HCL/PSEUDOEPHEDRINE HCL) (CON.) [Concomitant]

REACTIONS (8)
  - ASTHENIA [None]
  - BACK PAIN [None]
  - BLOOD PRESSURE DIASTOLIC INCREASED [None]
  - DYSPNOEA [None]
  - NAUSEA [None]
  - NECK PAIN [None]
  - PAIN IN EXTREMITY [None]
  - SUPRAVENTRICULAR TACHYCARDIA [None]
